FAERS Safety Report 19197167 (Version 1)
Quarter: 2021Q2

REPORT INFORMATION
  Report Type: Spontaneous
  Country: CA (occurrence: CA)
  Receive Date: 20210429
  Receipt Date: 20210429
  Transmission Date: 20210717
  Serious: Yes (Other)
  Sender: FDA-Public Use
  Company Number: CA-B.I. PHARMACEUTICALS,INC./RIDGEFIELD-2021-BI-099909

PATIENT
  Age: 47 Year
  Sex: Female

DRUGS (7)
  1. SALBUTAMOL SULFATE [Suspect]
     Active Substance: ALBUTEROL SULFATE
     Indication: PRODUCT USED FOR UNKNOWN INDICATION
     Route: 065
  2. NUCALA [Concomitant]
     Active Substance: MEPOLIZUMAB
     Indication: ASTHMA
     Route: 042
  3. SINGULAIR [Suspect]
     Active Substance: MONTELUKAST SODIUM
     Indication: PRODUCT USED FOR UNKNOWN INDICATION
     Route: 065
  4. SPIRIVA [Suspect]
     Active Substance: TIOTROPIUM BROMIDE MONOHYDRATE
     Indication: PRODUCT USED FOR UNKNOWN INDICATION
     Dosage: DOSAGE FORM: UNKNOWN
     Route: 065
  5. FLOVENT [Suspect]
     Active Substance: FLUTICASONE PROPIONATE
     Indication: PRODUCT USED FOR UNKNOWN INDICATION
     Route: 065
  6. ALVESCO [Suspect]
     Active Substance: CICLESONIDE
     Indication: PRODUCT USED FOR UNKNOWN INDICATION
     Dosage: DOSAGE FORM: AEROSOL, METERED DOSE
     Route: 055
  7. FORMOTEROL;MOMETASONE [Suspect]
     Active Substance: FORMOTEROL\MOMETASONE
     Indication: PRODUCT USED FOR UNKNOWN INDICATION
     Route: 065

REACTIONS (7)
  - Dyspnoea [Recovered/Resolved]
  - Loss of personal independence in daily activities [Recovered/Resolved]
  - Therapeutic product effect incomplete [Recovered/Resolved]
  - Asthma [Recovered/Resolved]
  - Sleep disorder due to a general medical condition [Recovered/Resolved]
  - Wheezing [Recovered/Resolved]
  - Pneumonia [Recovered/Resolved]
